FAERS Safety Report 10237735 (Version 1)
Quarter: 2014Q2

REPORT INFORMATION
  Report Type: Spontaneous
  Country: CA (occurrence: CA)
  Receive Date: 20140616
  Receipt Date: 20140616
  Transmission Date: 20141212
  Serious: Yes (Hospitalization)
  Sender: FDA-Public Use
  Company Number: CA-AMGEN-CANSP2014043515

PATIENT
  Age: 69 Year
  Sex: Female

DRUGS (1)
  1. NEUPOGEN [Suspect]
     Indication: PRODUCT USED FOR UNKNOWN INDICATION
     Dosage: 1ML/300MCG, 12 REPEATS
     Route: 065
     Dates: start: 20140528

REACTIONS (4)
  - Dehydration [Unknown]
  - Rash generalised [Unknown]
  - Bone pain [Unknown]
  - Myalgia [Unknown]
